FAERS Safety Report 12577842 (Version 1)
Quarter: 2016Q3

REPORT INFORMATION
  Report Type: Spontaneous
  Country: US (occurrence: None)
  Receive Date: 20160720
  Receipt Date: 20160720
  Transmission Date: 20161109
  Serious: Yes (Other)
  Sender: FDA-Public Use
  Company Number: None

PATIENT

DRUGS (2)
  1. ZYVOX [Suspect]
     Active Substance: LINEZOLID
     Indication: STAPHYLOCOCCAL INFECTION
     Dosage: IV-DL PICC
     Route: 042
     Dates: start: 20160425, end: 20160603
  2. ZYVOX [Suspect]
     Active Substance: LINEZOLID
     Indication: SKIN INFECTION
     Dosage: IV-DL PICC
     Route: 042
     Dates: start: 20160425, end: 20160603

REACTIONS (1)
  - Thrombocytopenia [None]

NARRATIVE: CASE EVENT DATE: 20160516
